FAERS Safety Report 8403358-1 (Version None)
Quarter: 2012Q2

REPORT INFORMATION
  Report Type: 
  Country: None (occurrence: None)
  Receive Date: 20120601
  Receipt Date: 20120530
  Transmission Date: 20120825
  Serious: Yes (Hospitalization)
  Sender: FDA-Public Use
  Company Number: US-PFIZER INC-2012130731

PATIENT
  Sex: Female
  Weight: 63.039 kg

DRUGS (11)
  1. METOPROLOL [Concomitant]
     Dosage: 50 MG, 2X/DAY
  2. MULTI-VITAMINS [Concomitant]
     Dosage: UNK
  3. NIACIN [Concomitant]
     Dosage: 500 MG, 2X/DAY
  4. ZANTAC [Concomitant]
     Dosage: 150 MG, 2X/DAY
  5. XANAX [Concomitant]
     Dosage: 0.5 MG, UNK
  6. AMITRIPTYLINE [Concomitant]
     Dosage: 10 MG, 1X/DAY
  7. WARFARIN SODIUM [Concomitant]
     Dosage: UNK
  8. ACCUPRIL [Suspect]
     Indication: HYPERTENSION
     Dosage: 20 MG, 1X/DAY
     Route: 048
     Dates: start: 20050101, end: 20120519
  9. SYNTHROID [Concomitant]
     Indication: HYPOTHYROIDISM
     Dosage: 0.88 UG, UNK
  10. PREMARIN [Concomitant]
     Dosage: 0.3 MG, UNK
  11. PRAVASTATIN [Concomitant]
     Dosage: 10 MG, 1X/DAY

REACTIONS (3)
  - BLOOD CALCIUM INCREASED [None]
  - INTERNATIONAL NORMALISED RATIO INCREASED [None]
  - RENAL FAILURE ACUTE [None]
